FAERS Safety Report 13728998 (Version 1)
Quarter: 2017Q3

REPORT INFORMATION
  Report Type: Spontaneous
  Country: OM (occurrence: OM)
  Receive Date: 20170707
  Receipt Date: 20170707
  Transmission Date: 20171127
  Serious: Yes (Other)
  Sender: FDA-Public Use
  Company Number: OM-STRIDES ARCOLAB LIMITED-2017SP010516

PATIENT

DRUGS (3)
  1. FLUCONAZOLE. [Interacting]
     Active Substance: FLUCONAZOLE
     Indication: PRODUCT USED FOR UNKNOWN INDICATION
     Dosage: UNK
     Route: 065
  2. HYDRALAZINE HCL [Suspect]
     Active Substance: HYDRALAZINE HYDROCHLORIDE
     Indication: HYPERTENSION
     Dosage: 4 MG/KG, UNKNOWN
     Route: 065
  3. AMLODIPINE [Interacting]
     Active Substance: AMLODIPINE BESYLATE
     Indication: HYPERTENSION
     Dosage: 5 MG, QD (0.4 MG/KG/DAY)
     Route: 065

REACTIONS (5)
  - Weight increased [Unknown]
  - Drug ineffective [Unknown]
  - Ascites [Unknown]
  - Drug interaction [Unknown]
  - Generalised oedema [Unknown]
